FAERS Safety Report 8311706-6 (Version None)
Quarter: 2012Q2

REPORT INFORMATION
  Report Type: 
  Country: None (occurrence: None)
  Receive Date: 20120425
  Receipt Date: 20120420
  Transmission Date: 20120825
  Serious: Yes (Other)
  Sender: FDA-Public Use
  Company Number: US-PFIZER INC-2012100093

PATIENT
  Sex: Male

DRUGS (3)
  1. CATAPRES [Suspect]
     Dosage: UNK
  2. METHOTREXATE SODIUM [Suspect]
     Dosage: UNK
  3. ARAVA [Suspect]
     Dosage: UNK

REACTIONS (2)
  - PANCYTOPENIA [None]
  - RASH [None]
